FAERS Safety Report 10906879 (Version 1)
Quarter: 2015Q1

REPORT INFORMATION
  Report Type: Spontaneous
  Country: US (occurrence: US)
  Receive Date: 20150312
  Receipt Date: 20150312
  Transmission Date: 20150721
  Serious: Yes (Hospitalization, Other)
  Sender: FDA-Public Use
  Company Number: US-AMGEN-USASP2015021714

PATIENT
  Age: 33 Year
  Sex: Female

DRUGS (2)
  1. METHOTREXATE [Concomitant]
     Active Substance: METHOTREXATE
     Dosage: UNK
  2. ENBREL [Suspect]
     Active Substance: ETANERCEPT
     Indication: RHEUMATOID ARTHRITIS
     Dosage: 50 MG, QWK
     Route: 065
     Dates: start: 2002, end: 2008

REACTIONS (12)
  - Influenza like illness [Not Recovered/Not Resolved]
  - Costochondritis [Not Recovered/Not Resolved]
  - Foetal heart rate decreased [Recovered/Resolved]
  - Chest pain [Not Recovered/Not Resolved]
  - Premature labour [Recovered/Resolved]
  - Heart rate decreased [Recovered/Resolved]
  - Fatigue [Not Recovered/Not Resolved]
  - Nodule [Not Recovered/Not Resolved]
  - Fibromyalgia [Not Recovered/Not Resolved]
  - Rheumatoid arthritis [Not Recovered/Not Resolved]
  - Bed rest [Recovered/Resolved]
  - Neck pain [Not Recovered/Not Resolved]

NARRATIVE: CASE EVENT DATE: 2009
